FAERS Safety Report 7266886-0 (Version None)
Quarter: 2011Q1

REPORT INFORMATION
  Report Type: 
  Country: None (occurrence: None)
  Receive Date: 20110120
  Receipt Date: 20110106
  Transmission Date: 20110831
  Serious: Yes (Hospitalization)
  Sender: FDA-Public Use
  Company Number: 025393

PATIENT
  Sex: Female

DRUGS (15)
  1. MOMETASONE FUROATE [Concomitant]
  2. HEPARIN [Concomitant]
  3. ZONISAMIDE [Concomitant]
  4. RALOXIFENE HYDROCHLORIDE [Concomitant]
  5. MAGNESIUM OXIDE [Concomitant]
  6. BIPERIDEN HYDROCHLORIDE TAB [Concomitant]
  7. MELILOT [Concomitant]
  8. TEPRENONE [Concomitant]
  9. LOXONIN /00890702/ [Concomitant]
  10. SELEGILINE HYDROCHLORIDE [Concomitant]
  11. CARBIDOPA + LEVODOPA [Concomitant]
  12. ENTACAPONE [Concomitant]
  13. SALICYLIC ACID [Concomitant]
  14. ROTIGOTINE (ROTIGOTINE) [Suspect]
     Indication: PARKINSON'S DISEASE
     Dosage: 16 MG TRANSDERMAL
     Route: 062
     Dates: start: 20100223
  15. FUROSEMIDE [Concomitant]

REACTIONS (3)
  - GASTROINTESTINAL HAEMORRHAGE [None]
  - ANAEMIA [None]
  - GASTRIC ULCER [None]
